FAERS Safety Report 22979405 (Version 3)
Quarter: 2023Q4

REPORT INFORMATION
  Report Type: Report from Study
  Country: BR (occurrence: BR)
  Receive Date: 20230925
  Receipt Date: 20231030
  Transmission Date: 20240109
  Serious: Yes (Other)
  Sender: FDA-Public Use
  Company Number: BR-BAYER-2023A130338

PATIENT
  Age: 72 Year
  Sex: Male

DRUGS (2)
  1. NEXAVAR [Suspect]
     Active Substance: SORAFENIB
     Indication: Hepatocellular carcinoma
     Dosage: UNK
     Dates: start: 20230828
  2. NEXAVAR [Suspect]
     Active Substance: SORAFENIB
     Indication: Hepatocellular carcinoma
     Dosage: UNK
     Dates: start: 20230929

REACTIONS (13)
  - Palmar-plantar erythrodysaesthesia syndrome [Recovering/Resolving]
  - Blister [Recovering/Resolving]
  - Gait disturbance [Recovering/Resolving]
  - Nonspecific reaction [Recovering/Resolving]
  - Peripheral swelling [Recovering/Resolving]
  - Pruritus [Recovering/Resolving]
  - Hypoaesthesia [None]
  - Anal rash [Recovering/Resolving]
  - Tongue ulceration [Recovering/Resolving]
  - Tongue biting [Recovering/Resolving]
  - Loss of personal independence in daily activities [Recovering/Resolving]
  - Burning sensation [Recovering/Resolving]
  - Poor quality sleep [None]

NARRATIVE: CASE EVENT DATE: 20230801
